FAERS Safety Report 7400952-1 (Version None)
Quarter: 2011Q2

REPORT INFORMATION
  Report Type: 
  Country: None (occurrence: None)
  Receive Date: 20110407
  Receipt Date: 20110330
  Transmission Date: 20111010
  Serious: Yes (Other)
  Sender: FDA-Public Use
  Company Number: JP-ASTRAZENECA-2011SE16559

PATIENT
  Age: 54 Year
  Sex: Female

DRUGS (21)
  1. DEPAS [Concomitant]
  2. SEROQUEL [Suspect]
     Route: 048
  3. SOLANTAL [Concomitant]
  4. TAKEPRON [Concomitant]
  5. MUCOSOLVAN [Concomitant]
  6. PLAVIX [Concomitant]
  7. DIAZEPAM [Concomitant]
  8. THEO-DUR [Concomitant]
  9. CYTOTEC [Concomitant]
  10. MAGLAX [Concomitant]
  11. TRANSAMIN [Concomitant]
  12. ANAFRANIL [Concomitant]
  13. SINGULAIR [Concomitant]
  14. CLEANAL [Concomitant]
  15. OPALMON [Concomitant]
  16. RISUMIC [Concomitant]
  17. METLIGINE [Concomitant]
     Route: 048
  18. GASMOTIN [Concomitant]
  19. AKINETON [Concomitant]
  20. ROHYPNOL [Concomitant]
  21. LOXONIN [Concomitant]

REACTIONS (1)
  - POLYDIPSIA PSYCHOGENIC [None]
